FAERS Safety Report 21776047 (Version 1)
Quarter: 2022Q4

REPORT INFORMATION
  Report Type: Spontaneous
  Country: US (occurrence: US)
  Receive Date: 20221226
  Receipt Date: 20221226
  Transmission Date: 20230113
  Serious: No
  Sender: FDA-Public Use
  Company Number: US-MIGRATION_PFIZER-2022BHV002436

PATIENT
  Age: 47 Year
  Sex: Female
  Weight: 89.438 kg

DRUGS (2)
  1. NURTEC ODT [Suspect]
     Active Substance: RIMEGEPANT SULFATE
     Indication: Migraine
     Dosage: ONE TABLET BY MOUTH ON MONDAYS, WEDNESDAYS, AND FRIDAYS
     Route: 048
     Dates: start: 202106
  2. QULIPTA [Suspect]
     Active Substance: ATOGEPANT
     Indication: Migraine
     Dosage: PATIENT REPORTS TAKING QULIPTA FIRST, THEN NURTEC A FEW HOURS LATER.
     Route: 065
     Dates: start: 202205

REACTIONS (2)
  - Drug ineffective [Not Recovered/Not Resolved]
  - Taste disorder [Recovered/Resolved]

NARRATIVE: CASE EVENT DATE: 20220501
